FAERS Safety Report 15946922 (Version 3)
Quarter: 2021Q2

REPORT INFORMATION
  Report Type: Spontaneous
  Country: US (occurrence: US)
  Receive Date: 20190211
  Receipt Date: 20210503
  Transmission Date: 20210716
  Serious: Yes (Other)
  Sender: FDA-Public Use
  Company Number: US-PFIZER INC-2016463710

PATIENT
  Age: 59 Year
  Sex: Female

DRUGS (17)
  1. LYRICA [Suspect]
     Active Substance: PREGABALIN
     Indication: NEURALGIA
     Dosage: 150 MG, 3X/DAY
     Route: 048
     Dates: start: 20160921
  2. VITAMIN C [Concomitant]
     Active Substance: ASCORBIC ACID
     Dosage: 1000 MG, DAILY
     Route: 048
  3. METHADONE [Concomitant]
     Active Substance: METHADONE HYDROCHLORIDE
     Dosage: 7.5 MG, 3X/DAY
  4. VITAMIN B COMPLEX [Concomitant]
     Active Substance: CYANOCOBALAMIN\DEXPANTHENOL\NIACINAMIDE\PYRIDOXINE HYDROCHLORIDE\RIBOFLAVIN 5^-PHOSPHATE SODIUM\THIAMINE HYDROCHLORIDE\VITAMIN B COMPLEX
     Dosage: 1 DF, 2X/DAY
     Route: 048
  5. LIDODERM [Concomitant]
     Active Substance: LIDOCAINE
     Dosage: UNK, AS NEEDED (APPLY FOR 12 HOURS, THEN REMOVE FOR 12 HOURS. UP TO THREE PATCHES)
     Dates: start: 20130904
  6. LYRICA [Suspect]
     Active Substance: PREGABALIN
     Dosage: 150 MG, 3X/DAY
     Route: 048
     Dates: start: 20190126, end: 2019
  7. LYRICA [Suspect]
     Active Substance: PREGABALIN
     Dosage: 150 MG
     Dates: start: 2019, end: 2019
  8. FISH OIL [Concomitant]
     Active Substance: FISH OIL
     Dosage: 1 DF, 2X/DAY
     Route: 048
  9. THERAGRAN [ASCORBIC ACID;BIOTIN;CALCIUM PANTOTHENATE;CYANOCOBALAMIN;ER [Concomitant]
     Dosage: 1 DF, DAILY
     Route: 048
     Dates: start: 20070621
  10. LYRICA [Suspect]
     Active Substance: PREGABALIN
     Dosage: 100 MG
     Dates: start: 2019
  11. STOOL SOFTENER (DOCUSATE) [Concomitant]
     Active Substance: DOCUSATE
     Dosage: UNK, DAILY (NIGHTLY)
     Route: 048
  12. MIRALAX [Concomitant]
     Active Substance: POLYETHYLENE GLYCOL 3350
     Dosage: 17 G, DAILY (AS NEEDED)
     Route: 048
  13. LYRICA [Suspect]
     Active Substance: PREGABALIN
     Indication: SPINAL CORD INFECTION
     Dosage: 75 MG
  14. PROBIOTIC [Concomitant]
     Active Substance: PROBIOTICS NOS
     Dosage: 2 DF, DAILY
     Dates: start: 20100603
  15. SENOKOT [Concomitant]
     Active Substance: SENNOSIDES
     Dosage: UNK, AS NEEDED
     Route: 048
  16. VISTARIL [Concomitant]
     Active Substance: HYDROXYZINE PAMOATE
     Indication: PRURITUS
     Dosage: 25 MG, AS NEEDED (TAKE ONE CAPSULE BY MOUTH THREE TIMES A DAY)
     Route: 048
     Dates: start: 20160107
  17. METHADONE [Concomitant]
     Active Substance: METHADONE HYDROCHLORIDE
     Indication: PAIN
     Dosage: 5 MG, AS NEEDED (EVERY 8 HOURS)
     Route: 048
     Dates: start: 20160803

REACTIONS (2)
  - Drug dependence [Unknown]
  - Expired product administered [Unknown]

NARRATIVE: CASE EVENT DATE: 20190126
